FAERS Safety Report 12130858 (Version 1)
Quarter: 2016Q1

REPORT INFORMATION
  Report Type: Spontaneous
  Country: US (occurrence: US)
  Receive Date: 20160301
  Receipt Date: 20160301
  Transmission Date: 20160526
  Serious: No
  Sender: FDA-Public Use
  Company Number: US-PFIZER INC-2016067690

PATIENT
  Sex: Female

DRUGS (1)
  1. EFFEXOR [Suspect]
     Active Substance: VENLAFAXINE HYDROCHLORIDE
     Indication: ANTIDEPRESSANT THERAPY
     Dosage: SMALLEST DOSE, THINKS ^0.75MG^
     Dates: start: 201507

REACTIONS (5)
  - Crying [Unknown]
  - Headache [Unknown]
  - Drug ineffective [Unknown]
  - Insomnia [Unknown]
  - Depressed mood [Unknown]
